FAERS Safety Report 6064510-6 (Version None)
Quarter: 2009Q1

REPORT INFORMATION
  Report Type: 
  Country: None (occurrence: None)
  Receive Date: 20090204
  Receipt Date: 20090130
  Transmission Date: 20090719
  Serious: Yes (Hospitalization, Congenital Anomaly)
  Sender: FDA-Public Use
  Company Number: A0726636A

PATIENT

DRUGS (5)
  1. PAXIL [Suspect]
     Indication: DEPRESSION
     Dates: start: 20010911, end: 20010927
  2. PAXIL CR [Suspect]
     Indication: DEPRESSION
     Dosage: 25MG PER DAY
     Dates: start: 20060101, end: 20070201
  3. CLARITIN [Concomitant]
     Indication: MULTIPLE ALLERGIES
     Dates: start: 20060701, end: 20070101
  4. WELLBUTRIN [Concomitant]
     Indication: DEPRESSION
     Dates: start: 20070601
  5. FLEXERIL [Concomitant]
     Indication: SCIATICA
     Dosage: 10MG AS REQUIRED
     Dates: start: 20070501

REACTIONS (8)
  - ATRIAL SEPTAL DEFECT [None]
  - CAESAREAN SECTION [None]
  - DRUG EXPOSURE DURING PREGNANCY [None]
  - NEONATAL DISORDER [None]
  - PREMATURE SEPARATION OF PLACENTA [None]
  - SKIN HAEMORRHAGE [None]
  - SUBCUTANEOUS ABSCESS [None]
  - VENTRICULAR SEPTAL DEFECT [None]
